FAERS Safety Report 20211808 (Version 1)
Quarter: 2021Q4

REPORT INFORMATION
  Report Type: Spontaneous
  Country: US (occurrence: None)
  Receive Date: 20211221
  Receipt Date: 20211221
  Transmission Date: 20220303
  Serious: No
  Sender: FDA-Public Use
  Company Number: None

PATIENT
  Sex: Male
  Weight: 85.4 kg

DRUGS (3)
  1. CYTARABINE [Suspect]
     Active Substance: CYTARABINE
  2. DAUNORUBICIN [Concomitant]
  3. ZINECARD [Concomitant]
     Active Substance: DEXRAZOXANE HYDROCHLORIDE

REACTIONS (8)
  - Hypotension [None]
  - Thrombocytopenia [None]
  - Haemorrhage [None]
  - Hypervolaemia [None]
  - Hypoxia [None]
  - Respiratory acidosis [None]
  - Acute kidney injury [None]
  - Respiratory failure [None]

NARRATIVE: CASE EVENT DATE: 20211015
